FAERS Safety Report 10242318 (Version 1)
Quarter: 2014Q2

REPORT INFORMATION
  Report Type: Spontaneous
  Country: CA (occurrence: CA)
  Receive Date: 20140617
  Receipt Date: 20140617
  Transmission Date: 20141212
  Serious: Yes (Other)
  Sender: FDA-Public Use
  Company Number: CA-BAYER-2014-089410

PATIENT
  Age: 26 Year
  Sex: Female

DRUGS (2)
  1. YASMIN 28 [Suspect]
     Indication: MENSTRUAL CYCLE MANAGEMENT
     Dosage: UNK
     Dates: start: 2013
  2. YASMINIQ [Suspect]
     Dosage: UNK
     Dates: start: 201405

REACTIONS (4)
  - Off label use [None]
  - Lower respiratory tract infection [None]
  - Nasopharyngitis [None]
  - Rash generalised [Not Recovered/Not Resolved]
